FAERS Safety Report 5385473-2 (Version None)
Quarter: 2007Q3

REPORT INFORMATION
  Report Type: 
  Country: None (occurrence: None)
  Receive Date: 20070706
  Receipt Date: 20070706
  Transmission Date: 20080115
  Serious: Yes (Other)
  Sender: FDA-Public Use
  Company Number: None

PATIENT
  Age: 65 Year
  Sex: Male
  Weight: 87.5442 kg

DRUGS (1)
  1. GABAPENTIN [Suspect]
     Indication: NEUROPATHY
     Dosage: 3 TABS TID
     Dates: start: 20070215

REACTIONS (1)
  - DENTAL CARIES [None]
